FAERS Safety Report 5054700-3 (Version None)
Quarter: 2006Q2

REPORT INFORMATION
  Report Type: 
  Country: None (occurrence: None)
  Receive Date: 20060614
  Receipt Date: 20060308
  Transmission Date: 20061013
  Serious: No
  Sender: FDA-Public Use
  Company Number: US200602005675

PATIENT
  Age: 71 Year
  Sex: Male

DRUGS (2)
  1. CIALIS [Suspect]
     Dosage: 20 MG, AS NEEDED
     Dates: start: 20050101
  2. IBUPROFEN [Concomitant]

REACTIONS (2)
  - BLOOD URINE PRESENT [None]
  - URINE ABNORMALITY [None]
